FAERS Safety Report 6316952-9 (Version None)
Quarter: 2009Q3

REPORT INFORMATION
  Report Type: 
  Country: None (occurrence: None)
  Receive Date: 20090820
  Receipt Date: 20090805
  Transmission Date: 20100115
  Serious: Yes (Death)
  Sender: FDA-Public Use
  Company Number: GB-GENENTECH-288654

PATIENT
  Sex: Male

DRUGS (4)
  1. BEVACIZUMAB [Suspect]
     Indication: GASTRIC CANCER
     Dosage: 450 MG, UNK
     Route: 042
     Dates: start: 20090302
  2. CAPECITABINE [Suspect]
     Indication: GASTRIC CANCER
     Dosage: 45150 MG, UNK
     Route: 048
     Dates: start: 20090302
  3. CISPLATIN [Suspect]
     Indication: GASTRIC CANCER
     Dosage: 100 MG, UNK
     Route: 042
     Dates: start: 20090302
  4. EPIRUBICIN [Suspect]
     Indication: GASTRIC CANCER
     Dosage: 85 MG, UNK
     Route: 042
     Dates: start: 20090302

REACTIONS (1)
  - MICROANGIOPATHIC HAEMOLYTIC ANAEMIA [None]
